FAERS Safety Report 7371722-8 (Version None)
Quarter: 2011Q1

REPORT INFORMATION
  Report Type: 
  Country: None (occurrence: None)
  Receive Date: 20110324
  Receipt Date: 20110315
  Transmission Date: 20110831
  Serious: Yes (Hospitalization)
  Sender: FDA-Public Use
  Company Number: CH-ASTRAZENECA-2011SE14837

PATIENT
  Age: 65 Year
  Sex: Female

DRUGS (11)
  1. BETASERC [Concomitant]
     Indication: MENIERE'S DISEASE
     Route: 048
  2. ACULAR [Concomitant]
     Indication: OPHTHALMOLOGIC TREATMENT
  3. FOSAMAX [Suspect]
     Indication: OSTEOPOROSIS
     Route: 048
     Dates: start: 19990101, end: 20050101
  4. CALCIMAGON D3 [Concomitant]
     Route: 048
  5. NEXIUM [Suspect]
     Indication: GASTRITIS
     Route: 048
     Dates: start: 20040101
  6. VITAMINE A [Concomitant]
     Indication: OPHTHALMOLOGIC TREATMENT
  7. BONIVA [Suspect]
     Indication: OSTEOPOROSIS
     Route: 048
     Dates: start: 20050101, end: 20110303
  8. PROTAGENT [Concomitant]
     Indication: OPHTHALMOLOGIC TREATMENT
  9. LACRYCON [Concomitant]
  10. NEXIUM [Suspect]
     Indication: HIATUS HERNIA
     Route: 048
     Dates: start: 20040101
  11. ANAFRANIL [Concomitant]
     Indication: DEPRESSION
     Route: 048

REACTIONS (1)
  - LOWER LIMB FRACTURE [None]
